FAERS Safety Report 9267724 (Version 1)
Quarter: 2013Q2

REPORT INFORMATION
  Report Type: Spontaneous
  Country: US (occurrence: US)
  Receive Date: 20130502
  Receipt Date: 20130502
  Transmission Date: 20140414
  Serious: Yes (Hospitalization)
  Sender: FDA-Public Use
  Company Number: US-ALEXION-A201200878

PATIENT
  Age: 2 Year
  Sex: Female
  Weight: 15.1 kg

DRUGS (2)
  1. SOLIRIS 300MG [Suspect]
     Indication: HAEMOLYTIC URAEMIC SYNDROME
     Dosage: 300 MG, EVERY 3 WEEKS
     Dates: start: 201003
  2. LISINOPRIL [Concomitant]
     Indication: HYPERTENSION
     Dosage: 1.5 MG, BID
     Route: 048

REACTIONS (1)
  - Platelet count decreased [Recovering/Resolving]
